FAERS Safety Report 8152459-4 (Version None)
Quarter: 2012Q1

REPORT INFORMATION
  Report Type: 
  Country: None (occurrence: None)
  Receive Date: 20120221
  Receipt Date: 20120209
  Transmission Date: 20120608
  Serious: Yes (Other)
  Sender: FDA-Public Use
  Company Number: CA-JNJFOC-20120206795

PATIENT
  Sex: Female
  Weight: 83.92 kg

DRUGS (3)
  1. REMICADE [Suspect]
     Indication: COLITIS ULCERATIVE
     Route: 042
     Dates: start: 20111030
  2. REMICADE [Suspect]
     Route: 042
     Dates: start: 20120209
  3. SYNTHROID [Concomitant]

REACTIONS (6)
  - INFUSION RELATED REACTION [None]
  - HYPOAESTHESIA [None]
  - RASH [None]
  - PALMAR ERYTHEMA [None]
  - SURGERY [None]
  - PRURITUS [None]
